FAERS Safety Report 9832444 (Version 2)
Quarter: 2014Q2

REPORT INFORMATION
  Report Type: Report from Study
  Country: US (occurrence: US)
  Receive Date: 20140121
  Receipt Date: 20140415
  Transmission Date: 20141212
  Serious: Yes (Hospitalization)
  Sender: FDA-Public Use
  Company Number: US-ACTELION-A-NJ2014-93769

PATIENT
  Age: 78 Year
  Sex: Female

DRUGS (4)
  1. MACITENTAN [Suspect]
     Indication: PULMONARY ARTERIAL HYPERTENSION
     Dosage: 10 MG, UNK
     Route: 048
  2. REVATIO [Concomitant]
     Dosage: 20 MG, OD
     Dates: start: 20140103
  3. WARFARIN [Concomitant]
     Dosage: 5 MG, OD
  4. TYVASO [Concomitant]

REACTIONS (2)
  - Fluid retention [Recovering/Resolving]
  - Nausea [Unknown]
